FAERS Safety Report 7513272-1 (Version None)
Quarter: 2011Q2

REPORT INFORMATION
  Report Type: 
  Country: None (occurrence: None)
  Receive Date: 20110526
  Receipt Date: 20110526
  Transmission Date: 20111010
  Serious: Yes (Hospitalization)
  Sender: FDA-Public Use
  Company Number: None

PATIENT
  Sex: Female
  Weight: 55.7924 kg

DRUGS (2)
  1. SYNTHROID [Suspect]
     Dosage: 1 PILL DAILY 1 ABOUT
  2. METROLOL 25MG WATSON [Suspect]
     Indication: BLOOD PRESSURE INCREASED
     Dosage: 1 DAILY
     Dates: start: 20110201, end: 20110401

REACTIONS (8)
  - THYROXINE FREE INCREASED [None]
  - FATIGUE [None]
  - PRODUCT SUBSTITUTION ISSUE [None]
  - BLOOD PRESSURE INCREASED [None]
  - TRI-IODOTHYRONINE DECREASED [None]
  - PALPITATIONS [None]
  - DIZZINESS [None]
  - FEELING ABNORMAL [None]
